FAERS Safety Report 21069243 (Version 1)
Quarter: 2022Q3

REPORT INFORMATION
  Report Type: Spontaneous
  Country: US (occurrence: US)
  Receive Date: 20220712
  Receipt Date: 20220712
  Transmission Date: 20221027
  Serious: No
  Sender: FDA-Public Use
  Company Number: US-BAYER-2022A096150

PATIENT
  Age: 86 Year
  Sex: Female

DRUGS (1)
  1. MIRALAX [Suspect]
     Active Substance: POLYETHYLENE GLYCOL 3350
     Indication: Gastrointestinal disorder
     Dosage: 17 GRAMS
     Route: 048

REACTIONS (2)
  - Therapeutic response unexpected [Recovering/Resolving]
  - Incorrect product administration duration [Recovering/Resolving]

NARRATIVE: CASE EVENT DATE: 20220301
